FAERS Safety Report 23668408 (Version 2)
Quarter: 2024Q1

REPORT INFORMATION
  Report Type: Spontaneous
  Country: CA (occurrence: CA)
  Receive Date: 20240325
  Receipt Date: 20240325
  Transmission Date: 20240409
  Serious: Yes (Other)
  Sender: FDA-Public Use
  Company Number: CA-SAMSUNG BIOEPIS-SB-2024-09136

PATIENT
  Age: 38 Year
  Sex: Male

DRUGS (1)
  1. ETANERCEPT [Suspect]
     Active Substance: ETANERCEPT
     Indication: Ankylosing spondylitis
     Dosage: FREQUENCY TWICE WEEKLY
     Route: 058

REACTIONS (3)
  - Pulmonary granuloma [Not Recovered/Not Resolved]
  - Thymoma [Recovered/Resolved]
  - Nasal polyps [Unknown]
